FAERS Safety Report 16807103 (Version 2)
Quarter: 2019Q3

REPORT INFORMATION
  Report Type: Spontaneous
  Country: US (occurrence: US)
  Receive Date: 20190913
  Receipt Date: 20190927
  Transmission Date: 20191005
  Serious: Yes (Other)
  Sender: FDA-Public Use
  Company Number: US-GLAXOSMITHKLINE-US2019AMR163498

PATIENT
  Sex: Female

DRUGS (1)
  1. BENLYSTA [Suspect]
     Active Substance: BELIMUMAB
     Indication: SYSTEMIC LUPUS ERYTHEMATOSUS
     Dosage: 400 MG, CYC, RECEIVING BENLYSTA ONCE A MONTH
     Route: 065
     Dates: start: 2014, end: 201902

REACTIONS (2)
  - Lung neoplasm malignant [Not Recovered/Not Resolved]
  - Pulmonary resection [Not Recovered/Not Resolved]
